FAERS Safety Report 4783219-X (Version None)
Quarter: 2005Q3

REPORT INFORMATION
  Report Type: 
  Country: None (occurrence: None)
  Receive Date: 20050914
  Receipt Date: 20050622
  Transmission Date: 20060218
  Serious: Yes (Death)
  Sender: FDA-Public Use
  Company Number: 163-20785-05060314

PATIENT
  Age: 80 Year
  Sex: Male
  Weight: 52.6173 kg

DRUGS (8)
  1. THALOMID [Suspect]
     Indication: MULTIPLE MYELOMA
     Dosage: 200 MG, QHS, ORAL
     Route: 048
     Dates: start: 20040609, end: 20050301
  2. PLAVIX [Concomitant]
  3. ACIPHEX [Concomitant]
  4. DURAGESIC-100 [Concomitant]
  5. SYNTHROID [Concomitant]
  6. MULTI-VITAMINS [Concomitant]
  7. PHOSLO (CALCIUM ACETATE) (TABLETS) [Concomitant]
  8. MEGACE [Concomitant]

REACTIONS (4)
  - ANOREXIA [None]
  - DEATH [None]
  - DISEASE PROGRESSION [None]
  - RENAL FAILURE [None]
